FAERS Safety Report 20948009 (Version 1)
Quarter: 2022Q2

REPORT INFORMATION
  Report Type: Spontaneous
  Country: IL (occurrence: IL)
  Receive Date: 20220611
  Receipt Date: 20220611
  Transmission Date: 20220720
  Serious: Yes (Hospitalization, Other)
  Sender: FDA-Public Use
  Company Number: IL-TEVA-2022-IL-2044403

PATIENT
  Age: 75 Year
  Sex: Male

DRUGS (1)
  1. OFLOXACIN [Suspect]
     Active Substance: OFLOXACIN
     Dosage: 400 MILLIGRAM DAILY;
     Route: 065
     Dates: start: 20220514

REACTIONS (3)
  - Atrial flutter [Unknown]
  - Tachycardia [Unknown]
  - Atrial fibrillation [Unknown]
